FAERS Safety Report 10374172 (Version 1)
Quarter: 2014Q3

REPORT INFORMATION
  Report Type: Spontaneous
  Country: US (occurrence: US)
  Receive Date: 20140811
  Receipt Date: 20140811
  Transmission Date: 20150326
  Serious: Yes (Hospitalization)
  Sender: FDA-Public Use
  Company Number: US-AMGEN-USASP2014059663

PATIENT
  Age: 51 Year
  Sex: Female

DRUGS (1)
  1. ENBREL [Suspect]
     Active Substance: ETANERCEPT
     Indication: RHEUMATOID ARTHRITIS
     Dosage: UNK MG, QWK
     Route: 065
     Dates: start: 20081201, end: 201406

REACTIONS (11)
  - Convulsion [Recovered/Resolved]
  - Pruritus [Not Recovered/Not Resolved]
  - Loss of consciousness [Recovered/Resolved]
  - Skin injury [Not Recovered/Not Resolved]
  - Hypertension [Recovered/Resolved]
  - Scab [Not Recovered/Not Resolved]
  - Impaired healing [Not Recovered/Not Resolved]
  - Urinary tract infection [Recovered/Resolved]
  - Furuncle [Recovered/Resolved]
  - Blood glucose increased [Recovered/Resolved]
  - Pain [Not Recovered/Not Resolved]

NARRATIVE: CASE EVENT DATE: 201405
